FAERS Safety Report 9886167 (Version 1)
Quarter: 2014Q1

REPORT INFORMATION
  Report Type: Spontaneous
  Country: US (occurrence: US)
  Receive Date: 20140210
  Receipt Date: 20140210
  Transmission Date: 20141002
  Serious: Yes (Hospitalization)
  Sender: FDA-Public Use
  Company Number: PHHY2014US012584

PATIENT
  Age: 61 Year
  Sex: Female

DRUGS (3)
  1. RABEPRAZOLE [Suspect]
     Dosage: 20 MG, DAILY
  2. OMEPRAZOLE [Suspect]
     Dosage: 40 MG, DAILY
  3. RANITIDINE [Concomitant]
     Dosage: 20 MG, DAILY

REACTIONS (8)
  - Hepatic cyst [Recovered/Resolved]
  - Drug-induced liver injury [Recovered/Resolved]
  - Jaundice [Unknown]
  - Chromaturia [Unknown]
  - Fatigue [Unknown]
  - Abdominal discomfort [Unknown]
  - Ocular icterus [Unknown]
  - Abdominal pain upper [Unknown]
